FAERS Safety Report 9981582 (Version 1)
Quarter: 2014Q1

REPORT INFORMATION
  Report Type: Report from Study
  Country: US (occurrence: US)
  Receive Date: 20140307
  Receipt Date: 20140307
  Transmission Date: 20141002
  Serious: No
  Sender: FDA-Public Use
  Company Number: US-ABBVIE-13P-163-1181525-00

PATIENT
  Age: 59 Year
  Sex: Female

DRUGS (8)
  1. HUMIRA [Suspect]
     Indication: COLITIS ULCERATIVE
     Dates: start: 20131207, end: 20131207
  2. HUMIRA [Suspect]
  3. ZETONNA [Concomitant]
     Indication: RHINITIS ALLERGIC
     Dosage: ONE SPRAY, EACH NARE AT BEDTIME
  4. CALCIUM + VITAMIN D [Concomitant]
     Indication: PRODUCT USED FOR UNKNOWN INDICATION
  5. LUTEIN [Concomitant]
     Indication: EYE DISORDER
  6. HYDROCORTISONE [Concomitant]
     Indication: DERMATITIS ALLERGIC
  7. TYLENOL [Concomitant]
     Indication: PAIN
  8. TYLENOL [Concomitant]
     Indication: HEADACHE

REACTIONS (2)
  - Injection site pain [Recovered/Resolved]
  - Injection site pain [Recovered/Resolved]
